FAERS Safety Report 24891420 (Version 1)
Quarter: 2025Q1

REPORT INFORMATION
  Report Type: Spontaneous
  Country: US (occurrence: US)
  Receive Date: 20250127
  Receipt Date: 20250127
  Transmission Date: 20250409
  Serious: Yes (Life-Threatening, Other)
  Sender: PFIZER
  Company Number: US-PFIZER INC-PV202500008323

PATIENT
  Age: 74 Year
  Sex: Male

DRUGS (15)
  1. DILTIAZEM HYDROCHLORIDE [Suspect]
     Active Substance: DILTIAZEM HYDROCHLORIDE
     Dosage: 30 MG, 4X/DAY (FEEDING TUBE EVERY 6 HRS)( DAYS 2-5)
  2. HEPARIN SODIUM [Suspect]
     Active Substance: HEPARIN SODIUM
     Dosage: 20 IU, 3X/DAY (ON HOSPITAL DAYS 20, 21, AND 25)
  3. FUROSEMIDE [Suspect]
     Active Substance: FUROSEMIDE
  4. DIGOXIN [Suspect]
     Active Substance: DIGOXIN
  5. CEFTRIAXONE [Suspect]
     Active Substance: CEFTRIAXONE
  6. THEOPHYLLINE [Concomitant]
     Active Substance: THEOPHYLLINE
  7. OFLOXACIN [Concomitant]
     Active Substance: OFLOXACIN
  8. INSULIN HUMAN [Concomitant]
     Active Substance: INSULIN HUMAN
  9. NIZATIDINE [Concomitant]
     Active Substance: NIZATIDINE
  10. METOCLOPRAMIDE [Concomitant]
     Active Substance: METOCLOPRAMIDE
  11. FLUCONAZOLE [Concomitant]
     Active Substance: FLUCONAZOLE
  12. LORAZEPAM [Concomitant]
     Active Substance: LORAZEPAM
  13. MORPHINE [Concomitant]
     Active Substance: MORPHINE
  14. PROMETHAZINE [Concomitant]
     Active Substance: PROMETHAZINE HYDROCHLORIDE
  15. HALOPERIDOL [Concomitant]
     Active Substance: HALOPERIDOL

REACTIONS (1)
  - Thrombocytopenia [Recovered/Resolved]
